FAERS Safety Report 20331696 (Version 1)
Quarter: 2022Q1

REPORT INFORMATION
  Report Type: Spontaneous
  Country: IR (occurrence: IR)
  Receive Date: 20220113
  Receipt Date: 20220113
  Transmission Date: 20220423
  Serious: Yes (Other)
  Sender: FDA-Public Use
  Company Number: IR-NOVARTISPH-NVSC2021IR302065

PATIENT
  Age: 25 Year
  Sex: Male

DRUGS (9)
  1. TERBINAFINE [Suspect]
     Active Substance: TERBINAFINE
     Indication: Scab
     Dosage: 250 MG, QD
     Route: 061
  2. TERBINAFINE [Suspect]
     Active Substance: TERBINAFINE
     Indication: Skin lesion
  3. TERBINAFINE [Suspect]
     Active Substance: TERBINAFINE
     Indication: Pruritus
  4. FLUCONAZOLE [Suspect]
     Active Substance: FLUCONAZOLE
     Indication: Scab
     Dosage: 150 MG, QD
     Route: 065
  5. FLUCONAZOLE [Suspect]
     Active Substance: FLUCONAZOLE
     Indication: Skin lesion
  6. FLUCONAZOLE [Suspect]
     Active Substance: FLUCONAZOLE
     Indication: Pruritus
  7. CLOTRIMAZOLE [Suspect]
     Active Substance: CLOTRIMAZOLE
     Indication: Scab
     Route: 061
  8. CLOTRIMAZOLE [Suspect]
     Active Substance: CLOTRIMAZOLE
     Indication: Skin lesion
  9. CLOTRIMAZOLE [Suspect]
     Active Substance: CLOTRIMAZOLE
     Indication: Pruritus

REACTIONS (2)
  - Pathogen resistance [Unknown]
  - Drug resistance [Unknown]
